FAERS Safety Report 4403443-5 (Version None)
Quarter: 2004Q3

REPORT INFORMATION
  Report Type: 
  Country: None (occurrence: None)
  Receive Date: 20040719
  Receipt Date: 20040706
  Transmission Date: 20050211
  Serious: Yes (Life-Threatening, Hospitalization, Other)
  Sender: FDA-Public Use
  Company Number: 2004031488

PATIENT
  Age: 55 Year
  Sex: Male

DRUGS (8)
  1. LOPID [Suspect]
     Indication: HYPERTRIGLYCERIDAEMIA
     Dosage: 1200 MG (600 MG, 2 IN 1 D), ORAL
     Route: 048
     Dates: start: 20040508, end: 20040510
  2. ASASANTIN (ACETYLSALICYLIC ACID, DIPYRIDAMOLE) [Suspect]
     Indication: CEREBROVASCULAR ACCIDENT
     Dosage: 50/400 MG (2 IN 1 D), ORAL
     Route: 048
     Dates: start: 20040401, end: 20040508
  3. ASASANTIN (ACETYLSALICYLIC ACID, DIPYRIDAMOLE) [Suspect]
     Indication: TRANSIENT ISCHAEMIC ATTACK
     Dosage: 50/400 MG (2 IN 1 D), ORAL
     Route: 048
     Dates: start: 20040401, end: 20040508
  4. DILTIAZEM HYDROCHLORIDE [Concomitant]
  5. ATORVASTATIN CALCIUM [Concomitant]
  6. OXYCODONE HCL [Concomitant]
  7. ACETYLSALICYLIC ACID SRT [Concomitant]
  8. SILDENAFIL CITRATE (SILDENAFIL CITRATE) [Concomitant]

REACTIONS (9)
  - ACUTE RESPIRATORY FAILURE [None]
  - ANGIONEUROTIC OEDEMA [None]
  - BACK PAIN [None]
  - BODY TEMPERATURE DECREASED [None]
  - BUNDLE BRANCH BLOCK LEFT [None]
  - CHRONIC OBSTRUCTIVE AIRWAYS DISEASE [None]
  - COMPLEMENT FACTOR C1 DECREASED [None]
  - PHOTOSENSITIVITY REACTION [None]
  - SUNBURN [None]
